FAERS Safety Report 11846837 (Version 1)
Quarter: 2015Q4

REPORT INFORMATION
  Report Type: Spontaneous
  Country: CA (occurrence: CA)
  Receive Date: 20151217
  Receipt Date: 20151217
  Transmission Date: 20160305
  Serious: Yes (Hospitalization, Other)
  Sender: FDA-Public Use
  Company Number: CA-GLAXOSMITHKLINE-CA2015GSK176523

PATIENT
  Sex: Male

DRUGS (2)
  1. AVANDIA [Suspect]
     Active Substance: ROSIGLITAZONE MALEATE
     Indication: DIABETES MELLITUS
     Dosage: 4 MG, QD
     Route: 065
     Dates: start: 20011218
  2. AVANDIA [Suspect]
     Active Substance: ROSIGLITAZONE MALEATE
     Dosage: 8 MG, QD
     Route: 065
     Dates: start: 20020417

REACTIONS (2)
  - Myocardial infarction [Unknown]
  - Angina unstable [Unknown]
